FAERS Safety Report 5916311-4 (Version None)
Quarter: 2008Q4

REPORT INFORMATION
  Report Type: 
  Country: None (occurrence: None)
  Receive Date: 20081013
  Receipt Date: 20081008
  Transmission Date: 20090506
  Serious: Yes (Death, Hospitalization, Disabling)
  Sender: FDA-Public Use
  Company Number: PHHY2008BR14874

PATIENT
  Sex: Male
  Weight: 13 kg

DRUGS (9)
  1. SANDIMMUNE [Suspect]
     Indication: PROPHYLAXIS AGAINST GRAFT VERSUS HOST DISEASE
     Dosage: 190 MG, QD
     Dates: start: 20071129, end: 20080107
  2. METHYLPREDNISOLONE [Concomitant]
  3. FLUCONAZOLE [Concomitant]
  4. ACYCLOVIR SODIUM [Concomitant]
  5. OMEPRAZOLE [Concomitant]
  6. ONDANSETRON [Concomitant]
  7. AMLODIPINE [Concomitant]
  8. URSODIOL [Concomitant]
  9. TPN [Concomitant]

REACTIONS (5)
  - DEPRESSED LEVEL OF CONSCIOUSNESS [None]
  - FATIGUE [None]
  - MECHANICAL VENTILATION [None]
  - RESPIRATORY FAILURE [None]
  - VISUAL IMPAIRMENT [None]
